FAERS Safety Report 4349927-X (Version None)
Quarter: 2004Q2

REPORT INFORMATION
  Report Type: 
  Country: None (occurrence: None)
  Receive Date: 20040428
  Receipt Date: 20040428
  Transmission Date: 20050107
  Serious: Yes (Other)
  Sender: FDA-Public Use
  Company Number: None

PATIENT
  Age: 43 Year
  Sex: Female
  Weight: 63.5036 kg

DRUGS (1)
  1. LEVAQUIN [Suspect]
     Indication: URINARY TRACT INFECTION
     Dosage: 500 MG 1 A DAY ORAL
     Route: 048
     Dates: start: 20030715, end: 20030724

REACTIONS (5)
  - ARTHRALGIA [None]
  - PALPITATIONS [None]
  - PANIC ATTACK [None]
  - TENDONITIS [None]
  - TINNITUS [None]
